FAERS Safety Report 5263037-9 (Version None)
Quarter: 2007Q1

REPORT INFORMATION
  Report Type: 
  Country: None (occurrence: None)
  Receive Date: 20070312
  Receipt Date: 20070308
  Transmission Date: 20070707
  Serious: Yes (Other)
  Sender: FDA-Public Use
  Company Number: CA-ROXANE LABORATORIES, INC-2007-DE-01431GD

PATIENT

DRUGS (4)
  1. MORPHINE [Suspect]
     Indication: POSTOPERATIVE ANALGESIA
  2. ACETAMINOPHEN [Suspect]
     Indication: POSTOPERATIVE ANALGESIA
  3. CELEBREX [Suspect]
     Indication: POSTOPERATIVE ANALGESIA
  4. FRAGMIN [Concomitant]
     Route: 058

REACTIONS (1)
  - DEEP VEIN THROMBOSIS [None]
